FAERS Safety Report 17569105 (Version 15)
Quarter: 2025Q1

REPORT INFORMATION
  Report Type: Report from Study
  Country: US (occurrence: US)
  Receive Date: 20200322
  Receipt Date: 20250103
  Transmission Date: 20250408
  Serious: Yes (Other)
  Sender: TAKEDA
  Company Number: US-SHIRE-US202010686

PATIENT
  Age: 77 Year
  Sex: Female
  Weight: 58 kg

DRUGS (48)
  1. HUMAN IMMUNOGLOBULIN G [Suspect]
     Active Substance: HUMAN IMMUNOGLOBULIN G
     Indication: Immunodeficiency common variable
     Dosage: 25 GRAM, Q4WEEKS
     Dates: start: 20090915
  2. HUMAN IMMUNOGLOBULIN G [Suspect]
     Active Substance: HUMAN IMMUNOGLOBULIN G
     Dosage: 25 GRAM, Q4WEEKS
     Dates: start: 20190911
  3. HUMAN IMMUNOGLOBULIN G [Suspect]
     Active Substance: HUMAN IMMUNOGLOBULIN G
     Dosage: 30 GRAM, Q4WEEKS
  4. HUMAN IMMUNOGLOBULIN G [Suspect]
     Active Substance: HUMAN IMMUNOGLOBULIN G
     Dosage: 35 GRAM, Q4WEEKS
  5. BENADRYL [Suspect]
     Active Substance: DIPHENHYDRAMINE HYDROCHLORIDE
     Indication: Product used for unknown indication
  6. ACETAMINOPHEN [Concomitant]
     Active Substance: ACETAMINOPHEN
  7. EPINEPHRINE [Concomitant]
     Active Substance: EPINEPHRINE
  8. LEVOMEFOLIC ACID [Concomitant]
     Active Substance: LEVOMEFOLIC ACID
  9. TOPIRAMATE [Concomitant]
     Active Substance: TOPIRAMATE
  10. LEVOTHYROXINE [Concomitant]
     Active Substance: LEVOTHYROXINE
  11. TRAZODONE [Concomitant]
     Active Substance: TRAZODONE HYDROCHLORIDE
  12. MOMETASONE [Concomitant]
     Active Substance: MOMETASONE
  13. SINGULAIR [Concomitant]
     Active Substance: MONTELUKAST SODIUM
  14. TYLENOL [Concomitant]
     Active Substance: ACETAMINOPHEN
  15. MINERALS\VITAMINS [Concomitant]
     Active Substance: MINERALS\VITAMINS
  16. SODIUM CHLORIDE [Concomitant]
     Active Substance: SODIUM CHLORIDE
  17. ESOMEPRAZOLE [Concomitant]
     Active Substance: ESOMEPRAZOLE
  18. BACLOFEN [Concomitant]
     Active Substance: BACLOFEN
  19. PFIZER-BIONTECH COVID-19 VACCINE [Concomitant]
     Active Substance: TOZINAMERAN
  20. COENZYME Q10 [Concomitant]
     Active Substance: DIETARY SUPPLEMENT\UBIDECARENONE
  21. MAGNESIUM [Concomitant]
     Active Substance: MAGNESIUM
  22. MAGNESIUM OXIDE [Concomitant]
     Active Substance: MAGNESIUM OXIDE
  23. EZETIMIBE\SIMVASTATIN [Concomitant]
     Active Substance: EZETIMIBE\SIMVASTATIN
  24. POTASSIUM [Concomitant]
     Active Substance: POTASSIUM
  25. DIPHENHYDRAMINE [Concomitant]
     Active Substance: DIPHENHYDRAMINE
  26. HEPARIN [Concomitant]
     Active Substance: HEPARIN SODIUM
  27. VITAMIN D3 [Concomitant]
     Active Substance: CHOLECALCIFEROL
  28. DICLOFENAC [Concomitant]
     Active Substance: DICLOFENAC
  29. IPRATROPIUM BROMIDE [Concomitant]
     Active Substance: IPRATROPIUM BROMIDE
  30. ROSUVASTATIN [Concomitant]
     Active Substance: ROSUVASTATIN
  31. ALLEGRA [Concomitant]
     Active Substance: FEXOFENADINE HYDROCHLORIDE
  32. MUCINEX D [Concomitant]
     Active Substance: GUAIFENESIN\PSEUDOEPHEDRINE HYDROCHLORIDE
  33. CYMBALTA [Concomitant]
     Active Substance: DULOXETINE HYDROCHLORIDE
  34. IMITREX [Concomitant]
     Active Substance: SUMATRIPTAN SUCCINATE
  35. TOPAMAX [Concomitant]
     Active Substance: TOPIRAMATE
  36. LIOTHYRONINE [Concomitant]
     Active Substance: LIOTHYRONINE
  37. ZITHROMAX [Concomitant]
     Active Substance: AZITHROMYCIN DIHYDRATE
  38. METHYLPREDNISOLONE [Concomitant]
     Active Substance: METHYLPREDNISOLONE
  39. TRAZODONE HCL [Concomitant]
     Active Substance: TRAZODONE HYDROCHLORIDE
  40. LEVOTHYROXINE SODIUM [Concomitant]
     Active Substance: LEVOTHYROXINE SODIUM
  41. LIOTHYRONINE SODIUM [Concomitant]
     Active Substance: LIOTHYRONINE SODIUM
  42. ROSUVASTATIN CALCIUM [Concomitant]
     Active Substance: ROSUVASTATIN CALCIUM
  43. MOMETASONE FUROATE [Concomitant]
     Active Substance: MOMETASONE FUROATE
  44. ALLEGRA ALLERGY [Concomitant]
     Active Substance: FEXOFENADINE HYDROCHLORIDE
  45. DICLOFENAC SODIUM [Concomitant]
     Active Substance: DICLOFENAC SODIUM
  46. POTASSIUM GLUCONATE [Concomitant]
     Active Substance: POTASSIUM GLUCONATE
  47. DIPHENHYDRAMINE HYDROCHLORIDE [Concomitant]
     Active Substance: DIPHENHYDRAMINE HYDROCHLORIDE
  48. ESOMEPRAZOLE MAGNESIUM [Concomitant]
     Active Substance: ESOMEPRAZOLE MAGNESIUM

REACTIONS (12)
  - Foot fracture [Unknown]
  - Urinary tract infection [Unknown]
  - Seasonal allergy [Not Recovered/Not Resolved]
  - Fall [Unknown]
  - Facial pain [Unknown]
  - Multiple allergies [Not Recovered/Not Resolved]
  - Bronchitis [Unknown]
  - COVID-19 [Unknown]
  - Sinusitis [Unknown]
  - Musculoskeletal chest pain [Unknown]
  - Burning sensation [Unknown]
  - Arthralgia [Unknown]

NARRATIVE: CASE EVENT DATE: 20200203
